FAERS Safety Report 8969355 (Version 1)
Quarter: 2012Q4

REPORT INFORMATION
  Report Type: 
  Country: US (occurrence: US)
  Receive Date: 20121218
  Receipt Date: 20121218
  Transmission Date: 20130627
  Serious: No
  Sender: FDA-Public Use
  Company Number: US-BRISTOL-MYERS SQUIBB COMPANY-16285124

PATIENT
  Age: 36 Year
  Sex: Female

DRUGS (5)
  1. ABILIFY [Suspect]
     Indication: DEPRESSION
  2. CITALOPRAM [Concomitant]
  3. PROTONIX [Concomitant]
  4. VITAMIN E [Concomitant]
  5. LAMICTAL [Concomitant]

REACTIONS (1)
  - Tardive dyskinesia [Not Recovered/Not Resolved]
